FAERS Safety Report 9007101 (Version 2)
Quarter: 2013Q1

REPORT INFORMATION
  Report Type: Spontaneous
  Country: US (occurrence: US)
  Receive Date: 20130110
  Receipt Date: 20130130
  Transmission Date: 20140127
  Serious: Yes (Death, Life-Threatening, Hospitalization, Other)
  Sender: FDA-Public Use
  Company Number: US-VERTEX PHARMACEUTICALS INC.-2013-000395

PATIENT
  Age: 42 Year
  Sex: Female
  Weight: 129 kg

DRUGS (9)
  1. INCIVEK [Suspect]
     Indication: HEPATITIS C
     Dosage: 750 MG, TID
     Route: 048
     Dates: start: 20121109, end: 20130101
  2. RIBAVIRIN [Suspect]
     Indication: HEPATITIS C
     Dosage: 600 MG, TID
     Route: 048
     Dates: start: 20121109, end: 20130101
  3. PEGASYS [Suspect]
     Indication: HEPATITIS C
     Dosage: 180 ?G, QW
     Route: 058
     Dates: start: 20121109, end: 20130101
  4. AMITRIPTYLINE [Concomitant]
     Dosage: 10 MG, UNK
     Dates: start: 20121106, end: 20130101
  5. RANITIDINE [Concomitant]
     Dosage: 300 MG, UNK
  6. SPIRONOLACTONE [Concomitant]
     Dosage: UNK
     Dates: start: 20121106, end: 20130101
  7. CITALOPRAM [Concomitant]
     Dosage: 40 MG, UNK
     Dates: start: 20121106, end: 20130101
  8. FUROSEMIDE [Concomitant]
     Dosage: 20 MG, UNK
     Dates: start: 20121106, end: 20130101
  9. OXYCODONE [Concomitant]
     Dosage: 5 MG, UNK
     Dates: start: 20121106, end: 20130101

REACTIONS (10)
  - Acute respiratory distress syndrome [Fatal]
  - Pulmonary oedema [Not Recovered/Not Resolved]
  - Respiratory failure [Not Recovered/Not Resolved]
  - Renal failure [Not Recovered/Not Resolved]
  - Disseminated intravascular coagulation [Not Recovered/Not Resolved]
  - Sepsis [Not Recovered/Not Resolved]
  - Hepatic cirrhosis [Not Recovered/Not Resolved]
  - Ascites [Recovered/Resolved]
  - Rectal haemorrhage [Not Recovered/Not Resolved]
  - Haemoglobin decreased [Not Recovered/Not Resolved]
